FAERS Safety Report 5628917-0 (Version None)
Quarter: 2008Q1

REPORT INFORMATION
  Report Type: 
  Country: None (occurrence: None)
  Receive Date: 20080214
  Receipt Date: 20080206
  Transmission Date: 20080703
  Serious: Yes (Other)
  Sender: FDA-Public Use
  Company Number: 2008SP002782

PATIENT
  Age: 48 Year
  Sex: Female

DRUGS (2)
  1. PEG-INTRON [Suspect]
     Indication: HEPATITIS C
     Dosage: SC
     Route: 058
     Dates: start: 20070228, end: 20070902
  2. RIBAVIRIN [Suspect]
     Indication: HEPATITIS C
     Dosage: PO
     Route: 048
     Dates: start: 20070228, end: 20070902

REACTIONS (14)
  - ANAEMIA [None]
  - BALANCE DISORDER [None]
  - DEHYDRATION [None]
  - DISORIENTATION [None]
  - DYSGRAPHIA [None]
  - FALL [None]
  - GAIT DISTURBANCE [None]
  - ORAL INTAKE REDUCED [None]
  - PAROSMIA [None]
  - READING DISORDER [None]
  - SPEECH DISORDER [None]
  - TREMOR [None]
  - UPPER RESPIRATORY TRACT INFECTION [None]
  - VISUAL DISTURBANCE [None]
